FAERS Safety Report 21389080 (Version 1)
Quarter: 2022Q3

REPORT INFORMATION
  Report Type: Report from Study
  Country: DE (occurrence: DE)
  Receive Date: 20220929
  Receipt Date: 20220929
  Transmission Date: 20221027
  Serious: Yes (Hospitalization)
  Sender: FDA-Public Use
  Company Number: None

PATIENT
  Sex: Female

DRUGS (10)
  1. METHOTREXATE [Suspect]
     Active Substance: METHOTREXATE
     Indication: Rheumatoid arthritis
     Dosage: UNIT DOSE : 12.5 MILLIGRAM ,  THERAPY END DATE : ASKU
     Route: 065
     Dates: start: 20160303
  2. METHOTREXATE [Suspect]
     Active Substance: METHOTREXATE
     Dosage: UNIT DOSE : 12.5 MILLIGRAM ,  THERAPY END DATE : ASKU
     Dates: start: 20171010
  3. METHOTREXATE [Suspect]
     Active Substance: METHOTREXATE
     Dosage: UNIT DOSE : 12.5 MILLIGRAM ,  THERAPY END DATE : ASKU
     Dates: start: 20190227
  4. METHOTREXATE [Suspect]
     Active Substance: METHOTREXATE
     Dosage: UNIT DOSE : 12.5 MILLIGRAM ,  THERAPY END DATE : ASKU
     Dates: start: 20160929
  5. METHOTREXATE [Suspect]
     Active Substance: METHOTREXATE
     Dosage: UNIT DOSE : 12.5 MILLIGRAM ,  THERAPY END DATE : ASKU
     Dates: start: 20180828
  6. METHOTREXATE [Suspect]
     Active Substance: METHOTREXATE
     Dosage: UNIT DOSE : 12.5 MILLIGRAM ,  THERAPY END DATE : ASKU
     Dates: start: 20170426
  7. METHOTREXATE [Suspect]
     Active Substance: METHOTREXATE
     Dosage: UNIT DOSE : 12.5 MILLIGRAM ,  THERAPY END DATE : ASKU
     Dates: start: 20180328
  8. METHOTREXATE [Suspect]
     Active Substance: METHOTREXATE
     Dosage: UNIT DOSE : 12.5 MILLIGRAM ,  THERAPY END DATE : ASKU
     Dates: start: 20190904
  9. METHOTREXATE [Suspect]
     Active Substance: METHOTREXATE
     Dosage: UNIT DOSE : 12.5 MILLIGRAM ,  THERAPY END DATE : ASKU
     Dates: start: 20160623
  10. CIMZIA [Suspect]
     Active Substance: CERTOLIZUMAB PEGOL
     Indication: Rheumatoid arthritis
     Dosage: UNIT DOSE : 200 MILLIGRAM , DURATION : 1 MONTH
     Route: 065
     Dates: start: 201603, end: 201604

REACTIONS (9)
  - Respiratory tract infection [Recovered/Resolved]
  - Abdominal pain lower [Recovered/Resolved]
  - Hypertensive crisis [Recovered/Resolved]
  - Coordination abnormal [Recovered/Resolved]
  - Renal neoplasm [Recovered/Resolved]
  - Hypertensive heart disease [Recovered/Resolved]
  - Bradycardia [Unknown]
  - Diverticulum [Recovered/Resolved]
  - Sensory level abnormal [Recovered/Resolved]

NARRATIVE: CASE EVENT DATE: 20180113
